FAERS Safety Report 14615527 (Version 1)
Quarter: 2018Q1

REPORT INFORMATION
  Report Type: Spontaneous
  Country: FR (occurrence: FR)
  Receive Date: 20180308
  Receipt Date: 20180308
  Transmission Date: 20180509
  Serious: Yes (Other)
  Sender: FDA-Public Use
  Company Number: FR-MERCK KGAA-2043365

PATIENT
  Age: 70 Year
  Sex: Female

DRUGS (1)
  1. NOVOTHYROX [Suspect]
     Active Substance: LEVOTHYROXINE SODIUM
     Indication: POST PROCEDURAL HYPOTHYROIDISM

REACTIONS (20)
  - Asthenia [None]
  - Hyperthyroidism [None]
  - Muscle spasms [None]
  - Insomnia [None]
  - Emotional disorder [None]
  - Mood altered [None]
  - Depression [None]
  - Crying [None]
  - Loss of personal independence in daily activities [None]
  - Headache [None]
  - Dizziness [None]
  - Irritable bowel syndrome [None]
  - Malaise [None]
  - Irritability [None]
  - Nausea [None]
  - Constipation [None]
  - Gastrointestinal pain [None]
  - Palpitations [None]
  - Fatigue [Not Recovered/Not Resolved]
  - Anxiety [None]
